FAERS Safety Report 9596768 (Version 1)
Quarter: 2013Q4

REPORT INFORMATION
  Report Type: Not Available
  Country: SE (occurrence: SE)
  Receive Date: 20131004
  Receipt Date: 20131004
  Transmission Date: 20140711
  Serious: Yes (Hospitalization)
  Sender: FDA-Public Use
  Company Number: SE-NAPPMUNDI-GBR-2013-0015896

PATIENT
  Age: 87 Year
  Sex: Female

DRUGS (22)
  1. DOLCONTIN [Suspect]
     Indication: PAIN
     Dosage: UNK
     Route: 065
  2. PROPOVAN [Concomitant]
     Dosage: 25 MG, UNK
     Route: 048
  3. LOCOBASE LPL [Concomitant]
  4. XALATAN [Concomitant]
     Dosage: EYE DROPS
     Route: 047
  5. NITROLINGUAL [Concomitant]
     Route: 060
  6. METOPROLOL [Concomitant]
     Dosage: UNK TABLET, UNK
     Route: 048
  7. TIMOLOL MALEATE [Concomitant]
     Dosage: EYE DROPS
     Route: 047
  8. LEVAXIN [Concomitant]
     Dosage: UNK TABLET, UNK
     Route: 048
  9. PANODIL [Concomitant]
     Dosage: UNK TABLET, UNK
     Route: 048
  10. LAXOBERAL [Concomitant]
     Dosage: UNK DROP, UNK
     Route: 048
  11. FURIX [Concomitant]
     Dosage: UNK TABLET, UNK
     Route: 048
  12. GAVISCON                           /00237601/ [Concomitant]
     Route: 048
  13. OVESTERIN [Concomitant]
     Route: 067
  14. OXASCAND [Concomitant]
     Dosage: UNK TABLET, UNK
     Route: 048
  15. TROMBYL [Concomitant]
     Dosage: UNK TABLET, UNK
     Route: 048
  16. ENALAPRIL [Concomitant]
     Dosage: UNK TABLET, UNK
  17. KETOGAN                            /00129101/ [Concomitant]
     Dosage: UNK TABLET, UNK
     Route: 048
  18. CANODERM [Concomitant]
  19. MOVICOL                            /01625101/ [Concomitant]
     Route: 048
  20. XERODENT                           /01274201/ [Concomitant]
     Route: 002
  21. PANTOLOC                           /01263204/ [Concomitant]
     Dosage: UNK TABLET, UNK
     Route: 048
  22. FURIX [Concomitant]
     Route: 048

REACTIONS (2)
  - Depressed level of consciousness [Recovering/Resolving]
  - Confusional state [Recovering/Resolving]
